FAERS Safety Report 6184287-3 (Version None)
Quarter: 2009Q2

REPORT INFORMATION
  Report Type: 
  Country: None (occurrence: None)
  Receive Date: 20090501
  Receipt Date: 20080708
  Transmission Date: 20091009
  Serious: Yes (Other)
  Sender: FDA-Public Use
  Company Number: 173945USA

PATIENT
  Sex: Female

DRUGS (3)
  1. PAMIDRONATE DISODIUM [Suspect]
  2. PAMIDRONATE DISODIUM [Suspect]
  3. ZOLEDRONIC ACID [Suspect]

REACTIONS (5)
  - DEFORMITY [None]
  - INFECTION [None]
  - OSTEONECROSIS [None]
  - PAIN [None]
  - SCAR [None]
